FAERS Safety Report 5615363-9 (Version None)
Quarter: 2008Q1

REPORT INFORMATION
  Report Type: 
  Country: None (occurrence: None)
  Receive Date: 20080201
  Receipt Date: 20080125
  Transmission Date: 20080703
  Serious: Yes (Other)
  Sender: FDA-Public Use
  Company Number: 2008SP002065

PATIENT
  Age: 44 Year
  Sex: Male

DRUGS (2)
  1. PEG-INTRON [Suspect]
     Indication: HEPATITIS C
     Dosage: SC
     Route: 058
     Dates: start: 20070702
  2. RIBAVIRIN [Suspect]
     Indication: HEPATITIS C
     Dosage: PO
     Route: 048
     Dates: start: 20070702

REACTIONS (6)
  - FEELING ABNORMAL [None]
  - HEADACHE [None]
  - PORCELAIN GALLBLADDER [None]
  - RED BLOOD CELL COUNT DECREASED [None]
  - STOMACH DISCOMFORT [None]
  - TYPE 2 DIABETES MELLITUS [None]
